FAERS Safety Report 24189658 (Version 1)
Quarter: 2024Q3

REPORT INFORMATION
  Report Type: Spontaneous
  Country: FR (occurrence: FR)
  Receive Date: 20240808
  Receipt Date: 20240808
  Transmission Date: 20241017
  Serious: Yes (Other)
  Sender: PFIZER
  Company Number: None

PATIENT
  Age: 83 Year
  Sex: Female

DRUGS (3)
  1. CARBOPLATIN [Suspect]
     Active Substance: CARBOPLATIN
     Indication: Epithelioid mesothelioma
     Dosage: UNK
  2. PEMETREXED [Suspect]
     Active Substance: PEMETREXED
     Indication: Epithelioid mesothelioma
     Dosage: UNK
  3. AVASTIN [Suspect]
     Active Substance: BEVACIZUMAB
     Indication: Epithelioid mesothelioma
     Dosage: 375 MG
     Route: 042
     Dates: start: 20240619, end: 20240619

REACTIONS (4)
  - Pulmonary embolism [Recovered/Resolved]
  - Asthenia [Recovered/Resolved]
  - Erythema [Recovered/Resolved]
  - Off label use [Unknown]

NARRATIVE: CASE EVENT DATE: 20240625
